FAERS Safety Report 8464836-2 (Version None)
Quarter: 2012Q2

REPORT INFORMATION
  Report Type: 
  Country: None (occurrence: None)
  Receive Date: 20120618
  Receipt Date: 20120614
  Transmission Date: 20120825
  Serious: Yes (Hospitalization, Other)
  Sender: FDA-Public Use
  Company Number: ADR-2011-11549

PATIENT
  Age: 48 Year
  Sex: Male

DRUGS (1)
  1. BACLOFEN [Suspect]
     Indication: SPINAL CORD DISORDER
     Dosage: 65 MCG/ML

REACTIONS (2)
  - PURULENCE [None]
  - WOUND INFECTION [None]
